FAERS Safety Report 15779995 (Version 1)
Quarter: 2019Q1

REPORT INFORMATION
  Report Type: Spontaneous
  Country: US (occurrence: US)
  Receive Date: 20190102
  Receipt Date: 20190102
  Transmission Date: 20190417
  Serious: No
  Sender: FDA-Public Use
  Company Number: PHEH2018US055066

PATIENT
  Sex: Female

DRUGS (2)
  1. BUPROPION HYDROCHLORIDE SANDOZ [Suspect]
     Active Substance: BUPROPION HYDROCHLORIDE
     Indication: HOT FLUSH
     Dosage: UNK
     Route: 065
  2. MYLAN BUPROPION [Suspect]
     Active Substance: BUPROPION
     Indication: HOT FLUSH
     Dosage: UNK
     Route: 065

REACTIONS (2)
  - Seasonal affective disorder [Unknown]
  - Product use in unapproved indication [Unknown]
